FAERS Safety Report 5874340-3 (Version None)
Quarter: 2008Q3

REPORT INFORMATION
  Report Type: 
  Country: None (occurrence: None)
  Receive Date: 20080908
  Receipt Date: 20080820
  Transmission Date: 20090109
  Serious: Yes (Hospitalization, Other)
  Sender: FDA-Public Use
  Company Number: DE-GENENTECH-266672

PATIENT
  Sex: Male

DRUGS (12)
  1. MABTHERA [Suspect]
     Indication: RHEUMATOID ARTHRITIS
     Dosage: 1000 MG, UNK
     Route: 042
     Dates: start: 20080515
  2. PREDNISOLONE [Suspect]
     Indication: DRUG USE FOR UNKNOWN INDICATION
     Dosage: 7.5 MG, QD
  3. METHOTREXATE [Concomitant]
     Indication: DRUG USE FOR UNKNOWN INDICATION
     Dosage: UNK
     Dates: start: 20080515
  4. FOLIC ACID [Concomitant]
     Indication: DRUG USE FOR UNKNOWN INDICATION
  5. PANTOPRAZOLE [Concomitant]
     Indication: DRUG USE FOR UNKNOWN INDICATION
  6. CALTRATE + D [Concomitant]
     Indication: DRUG USE FOR UNKNOWN INDICATION
  7. AMLODIPINE [Concomitant]
     Indication: DRUG USE FOR UNKNOWN INDICATION
  8. RAMIPRIL W/ HYDROCHLOROTHIAZIDE [Concomitant]
     Indication: DRUG USE FOR UNKNOWN INDICATION
  9. ASPIRIN [Concomitant]
     Indication: DRUG USE FOR UNKNOWN INDICATION
  10. TORSEMIDE [Concomitant]
     Indication: DRUG USE FOR UNKNOWN INDICATION
  11. MARCUMAR [Concomitant]
     Indication: DRUG USE FOR UNKNOWN INDICATION
  12. ACTRAPHANE [Concomitant]
     Indication: DRUG USE FOR UNKNOWN INDICATION

REACTIONS (3)
  - DEEP VEIN THROMBOSIS [None]
  - HYPERGLYCAEMIA [None]
  - PULMONARY EMBOLISM [None]
